FAERS Safety Report 6498343-3 (Version None)
Quarter: 2009Q4

REPORT INFORMATION
  Report Type: 
  Country: None (occurrence: None)
  Receive Date: 20091127
  Receipt Date: 20090609
  Transmission Date: 20100525
  Serious: Yes (Other)
  Sender: FDA-Public Use
  Company Number: 286859

PATIENT
  Sex: Male
  Weight: 117.9 kg

DRUGS (9)
  1. NOVOLOG [Suspect]
     Indication: TYPE 2 DIABETES MELLITUS
     Dosage: 15 IU, SINGLE, SUBCUTANEOUS; SUBCUTANEOUS
     Route: 058
     Dates: start: 20081126
  2. LASIX [Concomitant]
  3. OXYCONTIN [Concomitant]
  4. POTASSIUM (POTASSIUM) [Concomitant]
  5. SIMVASTATIN [Concomitant]
  6. LYRICA [Concomitant]
  7. LISINOPRIL [Concomitant]
  8. CYMBALTA [Concomitant]
  9. TRAZODONE HCL [Concomitant]

REACTIONS (1)
  - HYPOGLYCAEMIC UNCONSCIOUSNESS [None]
